FAERS Safety Report 7478998-7 (Version None)
Quarter: 2011Q2

REPORT INFORMATION
  Report Type: 
  Country: None (occurrence: None)
  Receive Date: 20110511
  Receipt Date: 20110511
  Transmission Date: 20111010
  Serious: No
  Sender: FDA-Public Use
  Company Number: None

PATIENT
  Sex: Female
  Weight: 96.1626 kg

DRUGS (2)
  1. SYMBICORT [Suspect]
     Indication: CHRONIC OBSTRUCTIVE PULMONARY DISEASE
     Dosage: 160MCG 4.5 2 X DAILY
     Dates: start: 20110324, end: 20110407
  2. CPAP [Concomitant]

REACTIONS (3)
  - ANAPHYLACTIC SHOCK [None]
  - ORAL CANDIDIASIS [None]
  - THROAT TIGHTNESS [None]
